FAERS Safety Report 15962535 (Version 4)
Quarter: 2019Q1

REPORT INFORMATION
  Report Type: Report from Study
  Country: US (occurrence: US)
  Receive Date: 20190214
  Receipt Date: 20190314
  Transmission Date: 20190417
  Serious: Yes (Death, Hospitalization, Other)
  Sender: FDA-Public Use
  Company Number: US-JNJFOC-20190215892

PATIENT
  Age: 71 Year
  Sex: Female

DRUGS (26)
  1. COLACE [Concomitant]
     Active Substance: DOCUSATE SODIUM
  2. ANUSOL NOS [Concomitant]
     Active Substance: BALSAM PERU\BENZYL BENZOATE\BISMUTH HYDROXIDE\BISMUTH SUBGALLATE\HYDROCORTISONE ACETATE\ZINC OXIDE
     Dosage: 1 QD FOR HEMORRHOIDS
  3. REMERON [Concomitant]
     Active Substance: MIRTAZAPINE
     Route: 048
  4. POTASSIUM [Concomitant]
     Active Substance: POTASSIUM
  5. ZOFRAN [Concomitant]
     Active Substance: ONDANSETRON HYDROCHLORIDE
  6. NEXIUM [Concomitant]
     Active Substance: ESOMEPRAZOLE MAGNESIUM
     Route: 048
  7. IMBRUVICA [Suspect]
     Active Substance: IBRUTINIB
     Indication: CHRONIC LYMPHOCYTIC LEUKAEMIA
     Dosage: 420 MG, QD
     Route: 048
  8. LOPRESSOR [Concomitant]
     Active Substance: METOPROLOL TARTRATE
  9. SIMETHICONE (DIMETHICONE) [Concomitant]
     Active Substance: DIMETHICONE
  10. HUMULIN NOS [Concomitant]
     Active Substance: INSULIN HUMAN
     Dosage: EVERY 6 HOURS
  11. VENETOCLAX. [Concomitant]
     Active Substance: VENETOCLAX
     Route: 048
  12. TYLENOL [Concomitant]
     Active Substance: ACETAMINOPHEN
     Dosage: 2 PILLS, EVERY 6 HOURS
     Route: 048
  13. POTASSIUM CHLORIDE. [Concomitant]
     Active Substance: POTASSIUM CHLORIDE
  14. ZOFRAN [Concomitant]
     Active Substance: ONDANSETRON HYDROCHLORIDE
     Indication: NAUSEA
     Dosage: EVERY 8 HOURS
  15. VENETOCLAX. [Concomitant]
     Active Substance: VENETOCLAX
     Route: 048
  16. ALBUMIN HUMAN [Concomitant]
     Active Substance: ALBUMIN HUMAN
  17. TOPROL XL [Concomitant]
     Active Substance: METOPROLOL SUCCINATE
  18. PERCOCET [Concomitant]
     Active Substance: ACETAMINOPHEN\OXYCODONE HYDROCHLORIDE
     Dosage: 5/325MG 1 PILL
     Route: 048
  19. VENETOCLAX. [Concomitant]
     Active Substance: VENETOCLAX
     Route: 048
  20. NYSTATIN. [Concomitant]
     Active Substance: NYSTATIN
     Dosage: POWDER TOPICALLY 2 TIMES A DAY
  21. IMBRUVICA [Suspect]
     Active Substance: IBRUTINIB
     Indication: CHRONIC LYMPHOCYTIC LEUKAEMIA
     Dosage: 420 MG, QD
     Route: 048
  22. IPRATROPIUM/ALBUTEROL [Concomitant]
     Active Substance: ALBUTEROL\IPRATROPIUM
  23. LEVEMIR [Concomitant]
     Active Substance: INSULIN DETEMIR
     Dosage: 100UNITS, 3ML SQ DAILY
  24. PROTONIX [Concomitant]
     Active Substance: PANTOPRAZOLE SODIUM
  25. BUMEX [Concomitant]
     Active Substance: BUMETANIDE
     Dosage: 4ML IV EVERY8 HOURS FOR 1 DAY
  26. OPIUM TINCTURE [Concomitant]
     Active Substance: MORPHINE
     Dosage: NASAL GASTRIC ROUTE EVERY 6 HOURS

REACTIONS (7)
  - Death [Fatal]
  - Constipation [Recovering/Resolving]
  - Asthenia [Recovering/Resolving]
  - Aspiration [Recovering/Resolving]
  - Pleural effusion [Recovering/Resolving]
  - Atrial fibrillation [Unknown]
  - Faeces discoloured [Unknown]

NARRATIVE: CASE EVENT DATE: 20190126
